FAERS Safety Report 9659286 (Version 2)
Quarter: 2013Q4

REPORT INFORMATION
  Report Type: Spontaneous
  Country: NG (occurrence: NG)
  Receive Date: 20131031
  Receipt Date: 20131031
  Transmission Date: 20140711
  Serious: Yes (Death, Congenital Anomaly)
  Sender: FDA-Public Use
  Company Number: 2013SP007488

PATIENT
  Sex: Male

DRUGS (3)
  1. NEVIRAPINE [Suspect]
     Indication: HIV INFECTION
     Route: 064
  2. TENOFOVIR DISOPROXIL FUMARATE [Suspect]
     Indication: HIV INFECTION
     Route: 064
  3. EMTRICITABINE [Suspect]
     Indication: HIV INFECTION
     Route: 064

REACTIONS (2)
  - Spina bifida [Fatal]
  - Foetal exposure during pregnancy [Fatal]
